FAERS Safety Report 7634517-3 (Version None)
Quarter: 2011Q3

REPORT INFORMATION
  Report Type: 
  Country: None (occurrence: None)
  Receive Date: 20110725
  Receipt Date: 20110720
  Transmission Date: 20111222
  Serious: Yes (Disabling, Other)
  Sender: FDA-Public Use
  Company Number: US-PFIZER INC-2011165260

PATIENT
  Sex: Female
  Weight: 81.6 kg

DRUGS (4)
  1. LYRICA [Suspect]
     Indication: PAIN
  2. CHLORPHENIRAMINE MALEATE [Concomitant]
     Indication: HYPERSENSITIVITY
     Dosage: UNK
  3. LYRICA [Suspect]
     Indication: HEADACHE
     Dosage: 200 MG, 3X/DAY
     Route: 048
  4. LYRICA [Suspect]
     Indication: TRIGEMINAL NEURALGIA

REACTIONS (9)
  - DRUG WITHDRAWAL SYNDROME [None]
  - CONVULSION [None]
  - HEPATIC ENZYME ABNORMAL [None]
  - MOVEMENT DISORDER [None]
  - PAIN [None]
  - CENTRAL NERVOUS SYSTEM INFECTION [None]
  - ILL-DEFINED DISORDER [None]
  - INFLUENZA [None]
  - NAUSEA [None]
